FAERS Safety Report 16193591 (Version 4)
Quarter: 2019Q2

REPORT INFORMATION
  Report Type: Spontaneous
  Country: JP (occurrence: JP)
  Receive Date: 20190413
  Receipt Date: 20190611
  Transmission Date: 20190711
  Serious: Yes (Hospitalization, Other)
  Sender: FDA-Public Use
  Company Number: JP-009507513-1904JPN000983J

PATIENT
  Age: 70 Year
  Sex: Male
  Weight: 54 kg

DRUGS (8)
  1. REBETOL [Suspect]
     Active Substance: RIBAVIRIN
     Indication: HEPATIC CIRRHOSIS
     Dosage: 600 MILLIGRAM
     Route: 048
     Dates: start: 20190301
  2. MAGMITT [Concomitant]
     Active Substance: MAGNESIUM OXIDE
     Dosage: UNK
     Route: 065
     Dates: start: 20181228
  3. ALDACTONE A [Concomitant]
     Active Substance: SPIRONOLACTONE
     Dosage: UNK
     Route: 065
     Dates: start: 20190104
  4. EPCLUSA [Suspect]
     Active Substance: SOFOSBUVIR\VELPATASVIR
     Indication: HEPATIC CIRRHOSIS
     Dosage: 1 DOSAGE FORM, QD
     Route: 048
     Dates: start: 20190301
  5. REBETOL [Suspect]
     Active Substance: RIBAVIRIN
     Dosage: 400 MILLIGRAM
     Route: 048
     Dates: start: 20190329
  6. REBETOL [Suspect]
     Active Substance: RIBAVIRIN
     Dosage: 600 MILLIGRAM
     Route: 048
     Dates: start: 20190308
  7. REBETOL [Suspect]
     Active Substance: RIBAVIRIN
     Dosage: 200 MILLIGRAM
     Route: 048
     Dates: start: 20190330, end: 20190331
  8. REMITCH [Concomitant]
     Active Substance: NALFURAFINE HYDROCHLORIDE
     Dosage: UNK
     Route: 065
     Dates: start: 20181228

REACTIONS (7)
  - Nasopharyngitis [Recovered/Resolved]
  - Hypoalbuminaemia [Unknown]
  - Nausea [Recovered/Resolved]
  - Anaemia [Recovered/Resolved]
  - Ascites [Recovered/Resolved]
  - Hydrocele [Recovered/Resolved]
  - Pneumonia [Recovered/Resolved]

NARRATIVE: CASE EVENT DATE: 20190315
